FAERS Safety Report 11648986 (Version 3)
Quarter: 2015Q4

REPORT INFORMATION
  Report Type: Spontaneous
  Country: JP (occurrence: JP)
  Receive Date: 20151021
  Receipt Date: 20151030
  Transmission Date: 20160304
  Serious: Yes (Other)
  Sender: FDA-Public Use
  Company Number: PHJP2015JP018011

PATIENT
  Age: 74 Year
  Sex: Female

DRUGS (1)
  1. ZOMETA [Suspect]
     Active Substance: ZOLEDRONIC ACID
     Indication: BREAST CANCER
     Dosage: UNK
     Route: 041
     Dates: start: 201204

REACTIONS (11)
  - Exposed bone in jaw [Unknown]
  - Gingival swelling [Unknown]
  - Bone pain [Not Recovered/Not Resolved]
  - Impaired healing [Unknown]
  - Osteonecrosis of jaw [Unknown]
  - Gingivitis [Unknown]
  - Tooth loss [Unknown]
  - Gingival abscess [Unknown]
  - Osteonecrosis [Unknown]
  - Purulent discharge [Unknown]
  - Hypophagia [Unknown]
